FAERS Safety Report 14941329 (Version 2)
Quarter: 2018Q2

REPORT INFORMATION
  Report Type: Spontaneous
  Country: JP (occurrence: JP)
  Receive Date: 20180526
  Receipt Date: 20180530
  Transmission Date: 20180711
  Serious: Yes (Hospitalization, Other)
  Sender: FDA-Public Use
  Company Number: JP-AMGEN-JPNSP2018071729

PATIENT
  Sex: Female

DRUGS (2)
  1. ENBREL [Suspect]
     Active Substance: ETANERCEPT
     Indication: RHEUMATOID ARTHRITIS
     Dosage: UNK
     Route: 065
     Dates: start: 2009
  2. ENBREL [Suspect]
     Active Substance: ETANERCEPT
     Dosage: UNK UNK, 2X/WEEK
     Route: 065

REACTIONS (10)
  - Disease progression [Unknown]
  - Blood cholesterol increased [Unknown]
  - Compression fracture [Unknown]
  - Pneumonia [Recovered/Resolved]
  - Decreased appetite [Unknown]
  - Blood pressure increased [Unknown]
  - Psoriasis [Unknown]
  - Rheumatoid arthritis [Unknown]
  - Cough [Unknown]
  - Pyrexia [Unknown]

NARRATIVE: CASE EVENT DATE: 2016
